FAERS Safety Report 5362229-8 (Version None)
Quarter: 2007Q2

REPORT INFORMATION
  Report Type: 
  Country: None (occurrence: None)
  Receive Date: 20070619
  Receipt Date: 20070607
  Transmission Date: 20071010
  Serious: Yes (Hospitalization)
  Sender: FDA-Public Use
  Company Number: AR-ROCHE-501522

PATIENT
  Age: 37 Year
  Sex: Female
  Weight: 64.5 kg

DRUGS (4)
  1. MYCOPHENOLATE MOFETIL [Suspect]
     Indication: LUPUS NEPHRITIS
     Route: 048
     Dates: start: 20060517, end: 20061106
  2. MYCOPHENOLATE MOFETIL [Suspect]
     Indication: LUPUS NEPHRITIS
     Route: 048
     Dates: start: 20061107
  3. AZATHIOPRINE [Suspect]
     Indication: LUPUS NEPHRITIS
     Route: 048
     Dates: start: 20061107
  4. OMEPRAZOLE [Concomitant]
     Dates: start: 20050101

REACTIONS (1)
  - PERICARDITIS [None]
